FAERS Safety Report 13913644 (Version 1)
Quarter: 2017Q3

REPORT INFORMATION
  Report Type: Spontaneous
  Country: US (occurrence: US)
  Receive Date: 20170828
  Receipt Date: 20170828
  Transmission Date: 20171127
  Serious: No
  Sender: FDA-Public Use
  Company Number: US-ROCHE-1138584

PATIENT
  Age: 36 Year
  Sex: Female

DRUGS (1)
  1. NUTROPIN [Suspect]
     Active Substance: SOMATROPIN
     Indication: GROWTH HORMONE DEFICIENCY

REACTIONS (6)
  - Metrorrhagia [Unknown]
  - Discomfort [Unknown]
  - Swelling [Unknown]
  - Fluid retention [Unknown]
  - Choking sensation [Unknown]
  - Dysphonia [Unknown]

NARRATIVE: CASE EVENT DATE: 20000126
